FAERS Safety Report 21115220 (Version 2)
Quarter: 2022Q3

REPORT INFORMATION
  Report Type: Report from Study
  Country: PE (occurrence: PE)
  Receive Date: 20220721
  Receipt Date: 20220804
  Transmission Date: 20221026
  Serious: Yes (Other)
  Sender: FDA-Public Use
  Company Number: PE-BAYER-2022A081763

PATIENT
  Age: 31 Year
  Sex: Female

DRUGS (1)
  1. BETAFERON [Suspect]
     Active Substance: INTERFERON BETA-1B
     Indication: Multiple sclerosis
     Dosage: 1.0 ML (AMPOULES)
     Dates: start: 20180422

REACTIONS (9)
  - Immunodeficiency [Unknown]
  - Platelet count decreased [Unknown]
  - Influenza [Unknown]
  - Platelet count increased [None]
  - Eye movement disorder [Not Recovered/Not Resolved]
  - Muscle twitching [Not Recovered/Not Resolved]
  - Speech disorder [Not Recovered/Not Resolved]
  - Lacrimation increased [Not Recovered/Not Resolved]
  - Stress [Not Recovered/Not Resolved]

NARRATIVE: CASE EVENT DATE: 20220501
